FAERS Safety Report 8429112-2 (Version None)
Quarter: 2012Q2

REPORT INFORMATION
  Report Type: 
  Country: None (occurrence: None)
  Receive Date: 20120612
  Receipt Date: 20120601
  Transmission Date: 20120825
  Serious: Yes (Other)
  Sender: FDA-Public Use
  Company Number: US-JNJFOC-20120602013

PATIENT
  Sex: Female
  Weight: 58.51 kg

DRUGS (3)
  1. METHOTREXATE [Concomitant]
     Route: 048
  2. REMICADE [Suspect]
     Indication: RHEUMATOID ARTHRITIS
     Route: 042
     Dates: end: 20120101
  3. HYDROXYCHLOROQUINE SULFATE [Concomitant]
     Route: 048

REACTIONS (2)
  - HIP FRACTURE [None]
  - INFECTION [None]
